FAERS Safety Report 21519019 (Version 2)
Quarter: 2022Q4

REPORT INFORMATION
  Report Type: Spontaneous
  Country: US (occurrence: US)
  Receive Date: 20221028
  Receipt Date: 20221105
  Transmission Date: 20230113
  Serious: Yes (Other)
  Sender: FDA-Public Use
  Company Number: US-drreddys-LIT/USA/22/0156433

PATIENT
  Age: 72 Year
  Sex: Female

DRUGS (3)
  1. COLCHICINE [Suspect]
     Active Substance: COLCHICINE
     Indication: Atelectasis
  2. COLCHICINE [Suspect]
     Active Substance: COLCHICINE
     Indication: Pleural effusion
  3. APIXABAN [Suspect]
     Active Substance: APIXABAN
     Indication: Pulmonary embolism

REACTIONS (5)
  - Drug ineffective for unapproved indication [Unknown]
  - Chest pain [Unknown]
  - Leukocytosis [Unknown]
  - Condition aggravated [Unknown]
  - Inflammatory marker increased [Unknown]
